FAERS Safety Report 23887822 (Version 1)
Quarter: 2024Q2

REPORT INFORMATION
  Report Type: Spontaneous
  Country: US (occurrence: US)
  Receive Date: 20240523
  Receipt Date: 20240523
  Transmission Date: 20240716
  Serious: No
  Sender: FDA-Public Use
  Company Number: US-BoehringerIngelheim-2024-BI-029460

PATIENT

DRUGS (2)
  1. JARDIANCE [Suspect]
     Active Substance: EMPAGLIFLOZIN
     Indication: Glomerular filtration rate decreased
  2. KERENDIA [Concomitant]
     Active Substance: FINERENONE
     Indication: Product used for unknown indication

REACTIONS (1)
  - Intentional product use issue [Unknown]
